FAERS Safety Report 6311532-3 (Version None)
Quarter: 2009Q3

REPORT INFORMATION
  Report Type: 
  Country: None (occurrence: None)
  Receive Date: 20090817
  Receipt Date: 20090805
  Transmission Date: 20100115
  Serious: Yes (Other)
  Sender: FDA-Public Use
  Company Number: DE-PFIZER INC-2009250377

PATIENT
  Age: 70 Year

DRUGS (13)
  1. VFEND [Suspect]
     Indication: OSTEOMYELITIS FUNGAL
     Dosage: 200 MG, 2X/DAY
     Route: 042
     Dates: start: 20090501
  2. VFEND [Suspect]
     Indication: SINUSITIS ASPERGILLUS
  3. VFEND [Suspect]
     Dosage: 200 MG, 2X/DAY
     Route: 048
     Dates: start: 20090601, end: 20090727
  4. VFEND [Suspect]
  5. ZIENAM [Concomitant]
     Dosage: 1 G, 3X/DAY
     Route: 042
  6. IMBUN [Concomitant]
     Dosage: 600 MG, 4X/DAY
     Route: 048
  7. LYRICA [Concomitant]
     Dosage: 300 MG, 2X/DAY
     Route: 048
  8. PANTOZOL [Concomitant]
     Dosage: 40 MG, 1X/DAY
     Route: 048
  9. FRAGMIN [Concomitant]
     Dosage: UNK
     Route: 058
  10. TRAMAL [Concomitant]
     Dosage: 30 GTT, AS NEEDED
     Route: 048
  11. NOVALGIN [Concomitant]
     Dosage: 40 GTT, AS NEEDED
     Route: 048
  12. NULYTELY [Concomitant]
     Dosage: UNK
     Route: 048
  13. PULSATILLA [Concomitant]
     Dosage: UNK
     Route: 048
     Dates: start: 20090701, end: 20090801

REACTIONS (2)
  - DRUG INEFFECTIVE [None]
  - DRUG LEVEL BELOW THERAPEUTIC [None]
